FAERS Safety Report 12951555 (Version 1)
Quarter: 2016Q4

REPORT INFORMATION
  Report Type: Spontaneous
  Country: US (occurrence: US)
  Receive Date: 20161117
  Receipt Date: 20161117
  Transmission Date: 20170207
  Serious: No
  Sender: FDA-Public Use
  Company Number: US-NOVOPROD-484541

PATIENT
  Age: 94 Year
  Sex: Female
  Weight: 81.63 kg

DRUGS (2)
  1. NOVOLOG [Suspect]
     Active Substance: INSULIN ASPART
     Indication: TYPE 2 DIABETES MELLITUS
     Dosage: 20 U QAM AND 15 U QPM
     Route: 058
     Dates: start: 2009, end: 201512
  2. NOVOLOG [Suspect]
     Active Substance: INSULIN ASPART
     Dosage: 10 U QAM AND 8 U QPM AND IF BLOOD GLUCOSE ISUNDER 100 MG/DL, NO DOSE MUST BE GIVEN
     Route: 058
     Dates: start: 201512

REACTIONS (10)
  - Swelling face [Not Recovered/Not Resolved]
  - Genital swelling [Not Recovered/Not Resolved]
  - Cardiac flutter [Not Recovered/Not Resolved]
  - Swollen tongue [Not Recovered/Not Resolved]
  - Hyperhidrosis [Not Recovered/Not Resolved]
  - Chest discomfort [Not Recovered/Not Resolved]
  - Chills [Not Recovered/Not Resolved]
  - Tinnitus [Not Recovered/Not Resolved]
  - Pollakiuria [Not Recovered/Not Resolved]
  - Influenza like illness [Not Recovered/Not Resolved]

NARRATIVE: CASE EVENT DATE: 201512
